FAERS Safety Report 8028559-6 (Version None)
Quarter: 2012Q1

REPORT INFORMATION
  Report Type: 
  Country: None (occurrence: None)
  Receive Date: 20120106
  Receipt Date: 20110208
  Transmission Date: 20120608
  Serious: No
  Sender: FDA-Public Use
  Company Number: US-MYLANLABS-2011S1002892

PATIENT
  Age: 48 Year
  Sex: Female
  Weight: 70.31 kg

DRUGS (3)
  1. AZATHIOPRINE [Suspect]
     Indication: CROHN'S DISEASE
     Route: 048
     Dates: start: 20110125
  2. AZATHIOPRINE [Suspect]
     Route: 048
     Dates: start: 20110125
  3. PREDNISONE TAB [Concomitant]
     Indication: CROHN'S DISEASE
     Dates: start: 20101001

REACTIONS (2)
  - ABDOMINAL DISTENSION [None]
  - HEADACHE [None]
